FAERS Safety Report 9575301 (Version 1)
Quarter: 2013Q4

REPORT INFORMATION
  Report Type: Spontaneous
  Country: US (occurrence: US)
  Receive Date: 20131001
  Receipt Date: 20131001
  Transmission Date: 20140711
  Serious: No
  Sender: FDA-Public Use
  Company Number: US-ABBVIE-13P-163-1086166-00

PATIENT
  Age: 7 Year
  Sex: Female
  Weight: 21.34 kg

DRUGS (3)
  1. KALETRA [Suspect]
     Indication: INJURY ASSOCIATED WITH DEVICE
     Dates: start: 20130430
  2. EPIVIR [Concomitant]
     Indication: INJURY ASSOCIATED WITH DEVICE
     Dates: start: 20130430
  3. ZIDOVUDINE [Concomitant]
     Indication: INJURY ASSOCIATED WITH DEVICE
     Dates: start: 20130430

REACTIONS (2)
  - Nausea [Not Recovered/Not Resolved]
  - Vomiting [Not Recovered/Not Resolved]
